FAERS Safety Report 5364048-5 (Version None)
Quarter: 2007Q2

REPORT INFORMATION
  Report Type: 
  Country: None (occurrence: None)
  Receive Date: 20070530
  Receipt Date: 20070105
  Transmission Date: 20071010
  Serious: No
  Sender: FDA-Public Use
  Company Number: 2006PV024601

PATIENT
  Age: 59 Year
  Sex: Female
  Weight: 92.9874 kg

DRUGS (5)
  1. BYETTA [Suspect]
     Indication: INSULIN RESISTANT DIABETES
     Dosage: 10 MCG; BID; SC, 5 MCG; BID; SC, 5 MCG; BID; SC
     Route: 058
     Dates: start: 20061101, end: 20061130
  2. BYETTA [Suspect]
     Indication: INSULIN RESISTANT DIABETES
     Dosage: 10 MCG; BID; SC, 5 MCG; BID; SC, 5 MCG; BID; SC
     Route: 058
     Dates: start: 20061103
  3. BYETTA [Suspect]
     Indication: INSULIN RESISTANT DIABETES
     Dosage: 10 MCG; BID; SC, 5 MCG; BID; SC, 5 MCG; BID; SC
     Route: 058
     Dates: start: 20061201
  4. BYETTA [Suspect]
  5. GLUCOPHAGE [Concomitant]

REACTIONS (4)
  - ERUCTATION [None]
  - INCORRECT DOSE ADMINISTERED [None]
  - INJECTION SITE URTICARIA [None]
  - NAUSEA [None]
